FAERS Safety Report 21820668 (Version 1)
Quarter: 2023Q1

REPORT INFORMATION
  Report Type: Spontaneous
  Country: FR (occurrence: FR)
  Receive Date: 20230105
  Receipt Date: 20230105
  Transmission Date: 20230418
  Serious: Yes (Hospitalization)
  Sender: FDA-Public Use
  Company Number: None

PATIENT
  Age: 79 Year
  Sex: Male
  Weight: 107 kg

DRUGS (3)
  1. LEVOFLOXACIN [Suspect]
     Active Substance: LEVOFLOXACIN
     Indication: Post procedural infection
     Dosage: 3 GRAM DAILY; 1G*3X/D
     Dates: start: 20220927, end: 20221121
  2. MEROPENEM [Suspect]
     Active Substance: MEROPENEM
     Indication: Post procedural infection
     Dosage: 3 GRAM DAILY; 1G*3X/D
     Dates: start: 20220927, end: 20221121
  3. VALACYCLOVIR [Suspect]
     Active Substance: VALACYCLOVIR HYDROCHLORIDE
     Indication: Herpes zoster
     Dosage: 1 GRAM DAILY; 500MG*2X/D,
     Dates: start: 20221108, end: 20221121

REACTIONS (1)
  - Rash maculo-papular [Not Recovered/Not Resolved]

NARRATIVE: CASE EVENT DATE: 20221109
